FAERS Safety Report 16394563 (Version 1)
Quarter: 2019Q2

REPORT INFORMATION
  Report Type: Other
  Country: NL (occurrence: NL)
  Receive Date: 20190605
  Receipt Date: 20190605
  Transmission Date: 20190711
  Serious: Yes (Hospitalization)
  Sender: FDA-Public Use
  Company Number: NL-B. BRAUN MEDICAL INC.-2067804

PATIENT
  Age: 51 Year
  Sex: Female

DRUGS (1)
  1. LIDOCAINE HYDROCHLORIDE AND DEXTROSE [Suspect]
     Active Substance: DEXTROSE\LIDOCAINE HYDROCHLORIDE
     Indication: LOCAL ANAESTHESIA
     Route: 058

REACTIONS (1)
  - Dermatitis bullous [None]
